FAERS Safety Report 9830040 (Version 4)
Quarter: 2014Q2

REPORT INFORMATION
  Report Type: Report from Study
  Country: DE (occurrence: DE)
  Receive Date: 20140120
  Receipt Date: 20140522
  Transmission Date: 20141212
  Serious: Yes (Hospitalization)
  Sender: FDA-Public Use
  Company Number: DE-ROCHE-1277676

PATIENT
  Age: 72 Year
  Sex: Male
  Weight: 72.5 kg

DRUGS (7)
  1. OBINUTUZUMAB [Suspect]
     Indication: NON-HODGKIN^S LYMPHOMA UNSPECIFIED HISTOLOGY INDOLENT
     Dosage: DATE OF MOST RECENT DOSE (VOLUME : 250 ML, DOSE CONCENTRATION : 40 MG/ML) PRIOR TO SAE : 13/JUN/2013
     Route: 042
     Dates: start: 20121122
  2. BENDAMUSTINE [Suspect]
     Indication: NON-HODGKIN^S LYMPHOMA UNSPECIFIED HISTOLOGY INDOLENT
     Dosage: ON 12/APR/2013, RECEIVED LAST HIS LAST DOSE OF 168.3 MG PRIOR TO SAE
     Route: 042
     Dates: start: 20121122
  3. TAVEGIL [Concomitant]
     Indication: PROPHYLAXIS
     Route: 065
     Dates: start: 20121122
  4. TAGAMET [Concomitant]
     Indication: PROPHYLAXIS OF NAUSEA AND VOMITING
     Route: 065
     Dates: start: 20121122
  5. GRANISETRON [Concomitant]
     Indication: PROPHYLAXIS OF NAUSEA AND VOMITING
     Route: 065
     Dates: start: 20121122
  6. PREDNISOLON [Concomitant]
     Indication: PROPHYLAXIS
     Route: 065
     Dates: start: 20121122
  7. PARACETAMOL [Concomitant]
     Indication: PAIN
     Route: 065
     Dates: start: 20121122

REACTIONS (2)
  - Myositis [Recovered/Resolved with Sequelae]
  - Myopathy [Recovered/Resolved with Sequelae]
